FAERS Safety Report 25640643 (Version 1)
Quarter: 2025Q3

REPORT INFORMATION
  Report Type: Report from Study
  Country: US (occurrence: US)
  Receive Date: 20250804
  Receipt Date: 20250804
  Transmission Date: 20251021
  Serious: No
  Sender: BridgeBio Pharma
  Company Number: US-BRIDGEBIO-25US001167

PATIENT

DRUGS (8)
  1. ACORAMIDIS [Suspect]
     Active Substance: ACORAMIDIS
     Indication: Cardiac amyloidosis
     Dosage: 2 DOSAGE FORM, BID
     Route: 048
  2. ASPIRIN [Concomitant]
     Active Substance: ASPIRIN
     Indication: Product used for unknown indication
  3. CALCIUM [Concomitant]
     Active Substance: CALCIUM
     Indication: Product used for unknown indication
  4. VITAMIN D NOS [Concomitant]
     Active Substance: CHOLECALCIFEROL\ERGOCALCIFEROL
     Indication: Product used for unknown indication
     Dosage: 1 DOSAGE FORM, QD
  5. SYNTHROID [Concomitant]
     Active Substance: LEVOTHYROXINE SODIUM
     Indication: Product used for unknown indication
  6. CETIRIZINE [Concomitant]
     Active Substance: CETIRIZINE HYDROCHLORIDE
     Indication: Product used for unknown indication
  7. PROBIOTICS [UMBRELLA TERM] [Concomitant]
     Indication: Product used for unknown indication
  8. PSEUDOEPHEDRINE [Concomitant]
     Active Substance: PSEUDOEPHEDRINE
     Indication: Product used for unknown indication

REACTIONS (1)
  - Diarrhoea [Recovering/Resolving]
